FAERS Safety Report 5139588-4 (Version None)
Quarter: 2006Q4

REPORT INFORMATION
  Report Type: 
  Country: None (occurrence: None)
  Receive Date: 20061024
  Receipt Date: 20061013
  Transmission Date: 20070319
  Serious: Yes (Life-Threatening)
  Sender: FDA-Public Use
  Company Number: 2006-149142-NL

PATIENT
  Age: 43 Year
  Sex: Male

DRUGS (5)
  1. VECURONIUM BROMIDE [Suspect]
     Indication: HYPOTONIA
     Dosage: 10 MG ONCE INTRAVENOUS BOLUS
     Route: 040
     Dates: start: 20060914, end: 20060914
  2. SUCCINYLCHOLINE CHLORIDE [Suspect]
     Indication: ANAESTHESIA
     Dosage: 100 MG ONCE INTRAVENOUS BOLUS
     Route: 040
     Dates: start: 20060914, end: 20060914
  3. GLYCOPYRRONIUM BROMIDE [Concomitant]
  4. REMIFENTANIL [Concomitant]
  5. PROPOFOL [Concomitant]

REACTIONS (2)
  - AIRWAY COMPLICATION OF ANAESTHESIA [None]
  - ANAPHYLACTIC REACTION [None]
